FAERS Safety Report 5058997-5 (Version None)
Quarter: 2006Q3

REPORT INFORMATION
  Report Type: 
  Country: None (occurrence: None)
  Receive Date: 20060719
  Receipt Date: 20060709
  Transmission Date: 20061208
  Serious: Yes (Other)
  Sender: FDA-Public Use
  Company Number: 2006-07-0609

PATIENT
  Age: 51 Year
  Sex: Male
  Weight: 70.3075 kg

DRUGS (15)
  1. PEG-INTRON [Suspect]
     Indication: HEPATITIS B
     Dosage: SUBCUTANEOUS
     Route: 058
     Dates: start: 20060419
  2. PEG-INTRON [Suspect]
     Indication: HEPATITIS C
     Dosage: SUBCUTANEOUS
     Route: 058
     Dates: start: 20060419
  3. REBETOL [Suspect]
     Indication: HEPATITIS B
     Dosage: ORAL
     Route: 048
     Dates: start: 20060419
  4. REBETOL [Suspect]
     Indication: HEPATITIS C
     Dosage: ORAL
     Route: 048
     Dates: start: 20060419
  5. DIAZEPAM [Concomitant]
  6. OXYCODONE HYDROCHLORIDE TABLETS [Concomitant]
  7. PROMETHAZINE HYDROCHLORIDE WITH CODEINE SYRUP [Concomitant]
  8. CARDIZEM [Concomitant]
  9. RHINOCORT [Concomitant]
  10. AEROBID [Concomitant]
  11. AEROBID [Concomitant]
  12. NEURONTIN [Concomitant]
  13. CELEBREX [Concomitant]
  14. COMBIVENT [Concomitant]
  15. WELLBUTRIN [Concomitant]

REACTIONS (9)
  - ANOREXIA [None]
  - BACK PAIN [None]
  - EYE ABSCESS [None]
  - EYE PAIN [None]
  - GLAUCOMA [None]
  - INFLUENZA LIKE ILLNESS [None]
  - PYREXIA [None]
  - RETINAL DISORDER [None]
  - WEIGHT DECREASED [None]
